FAERS Safety Report 6178253-1 (Version None)
Quarter: 2009Q2

REPORT INFORMATION
  Report Type: 
  Country: None (occurrence: None)
  Receive Date: 20090504
  Receipt Date: 20090424
  Transmission Date: 20091009
  Serious: Yes (Death, Hospitalization)
  Sender: FDA-Public Use
  Company Number: A0781599A

PATIENT
  Age: 56 Year
  Sex: Male
  Weight: 175 kg

DRUGS (3)
  1. AVANDAMET [Suspect]
     Dosage: 4MG TWICE PER DAY
     Dates: start: 20030101, end: 20061201
  2. METFORMIN HCL [Concomitant]
     Dates: start: 20030101, end: 20070101
  3. GLARGINE [Concomitant]
     Dates: start: 20031101, end: 20061201

REACTIONS (4)
  - CARDIAC FAILURE CONGESTIVE [None]
  - DEATH [None]
  - FLUID RETENTION [None]
  - HEART RATE IRREGULAR [None]
